FAERS Safety Report 17059709 (Version 1)
Quarter: 2019Q4

REPORT INFORMATION
  Report Type: Spontaneous
  Country: US (occurrence: US)
  Receive Date: 20191121
  Receipt Date: 20191121
  Transmission Date: 20200122
  Serious: Yes (Death, Hospitalization)
  Sender: FDA-Public Use
  Company Number: US-IBSA PHARMA-TIR-2019-0868

PATIENT
  Age: 87 Year
  Sex: Female

DRUGS (3)
  1. LEVOTHYROXINE. [Suspect]
     Active Substance: LEVOTHYROXINE
     Indication: HYPOTHYROIDISM
     Route: 048
  2. HYDROXYCARBAM [Suspect]
     Active Substance: HYDROXYUREA
     Indication: THROMBOCYTOPENIA
  3. AMIODARONE [Suspect]
     Active Substance: AMIODARONE
     Indication: CARDIAC FAILURE

REACTIONS (6)
  - Cardiac failure [None]
  - Femur fracture [None]
  - Influenza [None]
  - Myocardial infarction [None]
  - Anaemia macrocytic [None]
  - Pulmonary toxicity [None]
